FAERS Safety Report 5726659-4 (Version None)
Quarter: 2008Q2

REPORT INFORMATION
  Report Type: 
  Country: None (occurrence: None)
  Receive Date: 20080502
  Receipt Date: 20080422
  Transmission Date: 20081010
  Serious: Yes (Other)
  Sender: FDA-Public Use
  Company Number: FR-ROCHE-561397

PATIENT
  Sex: Male

DRUGS (2)
  1. RIBAVIRIN [Suspect]
     Indication: HEPATITIS C
     Route: 065
  2. INTERFERON ALFA [Suspect]
     Indication: HEPATITIS C
     Route: 065

REACTIONS (1)
  - TUBERCULOSIS [None]
